FAERS Safety Report 16670231 (Version 2)
Quarter: 2019Q3

REPORT INFORMATION
  Report Type: Spontaneous
  Country: CY (occurrence: CY)
  Receive Date: 20190805
  Receipt Date: 20190807
  Transmission Date: 20191004
  Serious: Yes (Other)
  Sender: FDA-Public Use
  Company Number: CY-PFIZER INC-2019334215

PATIENT
  Sex: Male

DRUGS (3)
  1. MEDROL [Suspect]
     Active Substance: METHYLPREDNISOLONE
     Dosage: 8 MG (HALF OF 16 MG), DAILY
     Dates: start: 20190713, end: 20190715
  2. FUSICORT [Concomitant]
     Indication: RASH
  3. MEDROL [Suspect]
     Active Substance: METHYLPREDNISOLONE
     Indication: RASH
     Dosage: 16 MG, DAILY
     Dates: start: 20190710, end: 20190712

REACTIONS (1)
  - Cataract [Unknown]
